FAERS Safety Report 12342478 (Version 3)
Quarter: 2016Q2

REPORT INFORMATION
  Report Type: Spontaneous
  Country: US (occurrence: US)
  Receive Date: 20160506
  Receipt Date: 20160520
  Transmission Date: 20160815
  Serious: Yes (Hospitalization, Other)
  Sender: FDA-Public Use
  Company Number: US-ASTELLAS-2016US012399

PATIENT
  Age: 77 Year
  Sex: Male

DRUGS (2)
  1. XTANDI [Suspect]
     Active Substance: ENZALUTAMIDE
     Indication: HORMONE-REFRACTORY PROSTATE CANCER
     Route: 048
     Dates: end: 201603
  2. XTANDI [Suspect]
     Active Substance: ENZALUTAMIDE
     Indication: METASTASIS
     Route: 048
     Dates: start: 201604, end: 20160423

REACTIONS (9)
  - Seizure [Unknown]
  - Dizziness [Recovered/Resolved]
  - Proctalgia [Unknown]
  - Gastric ulcer perforation [Unknown]
  - Tremor [Recovered/Resolved]
  - Rectal haemorrhage [Unknown]
  - Abdominal pain upper [Recovered/Resolved]
  - Anal incontinence [Unknown]
  - Seizure [Unknown]

NARRATIVE: CASE EVENT DATE: 2016
